FAERS Safety Report 13301320 (Version 1)
Quarter: 2017Q1

REPORT INFORMATION
  Report Type: Spontaneous
  Country: US (occurrence: US)
  Receive Date: 20170306
  Receipt Date: 20170306
  Transmission Date: 20170428
  Serious: Yes (Hospitalization, Other)
  Sender: FDA-Public Use
  Company Number: None

PATIENT
  Age: 40 Year
  Sex: Male
  Weight: 90 kg

DRUGS (2)
  1. OTEZLA [Suspect]
     Active Substance: APREMILAST
     Indication: PSORIASIS
     Dosage: ?          QUANTITY:1 TABLET(S);?
     Route: 055
     Dates: start: 20170118, end: 20170304
  2. FINESTRADE [Concomitant]

REACTIONS (3)
  - Musculoskeletal discomfort [None]
  - Blood pressure increased [None]
  - Heart rate increased [None]

NARRATIVE: CASE EVENT DATE: 20170305
